FAERS Safety Report 8297849-4 (Version None)
Quarter: 2012Q2

REPORT INFORMATION
  Report Type: 
  Country: None (occurrence: None)
  Receive Date: 20120419
  Receipt Date: 20120329
  Transmission Date: 20120825
  Serious: No
  Sender: FDA-Public Use
  Company Number: US-ROXANE LABORATORIES, INC.-2012-RO-00922RO

PATIENT
  Age: 44 Year
  Sex: Female

DRUGS (4)
  1. EXEMESTANE [Suspect]
     Indication: ADJUVANT THERAPY
     Dosage: 25 MG
     Route: 048
     Dates: start: 20110501
  2. METOPROLOL TARTRATE [Concomitant]
  3. SLEEP MED [Concomitant]
  4. GABAPENTIN [Concomitant]

REACTIONS (4)
  - BRADYPHRENIA [None]
  - PSORIASIS [None]
  - FIBROMYALGIA [None]
  - NAUSEA [None]
